FAERS Safety Report 16308086 (Version 5)
Quarter: 2020Q2

REPORT INFORMATION
  Report Type: Report from Study
  Country: None (occurrence: CA)
  Receive Date: 20190514
  Receipt Date: 20200603
  Transmission Date: 20200713
  Serious: Yes (Hospitalization, Other)
  Sender: FDA-Public Use
  Company Number: CA-ABBVIE-19K-028-2779139-00

PATIENT
  Age: 60 Year
  Sex: Male

DRUGS (2)
  1. HUMIRA [Suspect]
     Active Substance: ADALIMUMAB
     Indication: ANKYLOSING SPONDYLITIS
     Route: 058
     Dates: start: 20190205, end: 20190425
  2. HUMIRA [Suspect]
     Active Substance: ADALIMUMAB
     Route: 058
     Dates: start: 2019

REACTIONS (14)
  - Unresponsive to stimuli [Recovered/Resolved]
  - Somnolence [Unknown]
  - Complication associated with device [Unknown]
  - Pain [Not Recovered/Not Resolved]
  - Seizure [Unknown]
  - Epistaxis [Not Recovered/Not Resolved]
  - Blood glucose increased [Unknown]
  - Influenza [Unknown]
  - Fall [Recovered/Resolved]
  - Coronary arterial stent insertion [Unknown]
  - Post procedural complication [Not Recovered/Not Resolved]
  - Loss of consciousness [Unknown]
  - Cerebrovascular accident [Unknown]
  - Therapeutic response shortened [Unknown]

NARRATIVE: CASE EVENT DATE: 2019
